FAERS Safety Report 17308711 (Version 1)
Quarter: 2020Q1

REPORT INFORMATION
  Report Type: Spontaneous
  Country: US (occurrence: US)
  Receive Date: 20200123
  Receipt Date: 20200123
  Transmission Date: 20200409
  Serious: Yes (Other)
  Sender: FDA-Public Use
  Company Number: US-ALK-ABELLO A/S-2020AA000109

PATIENT

DRUGS (1)
  1. ODACTRA [Suspect]
     Active Substance: DERMATOPHAGOIDES FARINAE\DERMATOPHAGOIDES PTERONYSSINUS
     Indication: PRODUCT USED FOR UNKNOWN INDICATION
     Dosage: UNK
     Dates: start: 20191218, end: 20191218

REACTIONS (3)
  - Lip swelling [Recovered/Resolved]
  - Rash [Recovered/Resolved]
  - Sensation of foreign body [Recovered/Resolved]

NARRATIVE: CASE EVENT DATE: 20191218
